FAERS Safety Report 8454870-0 (Version None)
Quarter: 2012Q2

REPORT INFORMATION
  Report Type: 
  Country: None (occurrence: None)
  Receive Date: 20120621
  Receipt Date: 20120611
  Transmission Date: 20120825
  Serious: Yes (Hospitalization, Other)
  Sender: FDA-Public Use
  Company Number: US-BAYER-2012-050149

PATIENT
  Age: 29 Year
  Sex: Female
  Weight: 90.703 kg

DRUGS (5)
  1. YAZ [Suspect]
     Dosage: UNK
     Dates: start: 20100201, end: 20100601
  2. SUMATRIPTAN [Concomitant]
     Dosage: UNK
     Dates: start: 20100101
  3. IMITREX [Concomitant]
     Dosage: PRN
  4. OMEPRAZOLE [Concomitant]
     Dosage: 20 MG, UNK
  5. DROSPIRENONE AND ETHINYL ESTRADIOL [Suspect]
     Dosage: UNK
     Dates: start: 20030501

REACTIONS (14)
  - DIARRHOEA [None]
  - CONSTIPATION [None]
  - INJURY [None]
  - ABDOMINAL DISTENSION [None]
  - ASCITES [None]
  - CHOLECYSTITIS CHRONIC [None]
  - PAIN [None]
  - MOOD SWINGS [None]
  - EMOTIONAL DISTRESS [None]
  - GENERAL PHYSICAL HEALTH DETERIORATION [None]
  - ANXIETY [None]
  - VOMITING [None]
  - HEADACHE [None]
  - GALLBLADDER DISORDER [None]
